FAERS Safety Report 5833086-8 (Version None)
Quarter: 2008Q3

REPORT INFORMATION
  Report Type: 
  Country: None (occurrence: None)
  Receive Date: 20080805
  Receipt Date: 20080729
  Transmission Date: 20090109
  Serious: Yes (Hospitalization)
  Sender: FDA-Public Use
  Company Number: FR-ASTRAZENECA-2008CG01142

PATIENT
  Age: 917 Month
  Sex: Female

DRUGS (4)
  1. NEXIUM [Suspect]
     Route: 048
     Dates: start: 20080101, end: 20080612
  2. MEPRONIZINE [Concomitant]
  3. EFFEXOR [Concomitant]
  4. NORMISON [Concomitant]

REACTIONS (1)
  - CLOSTRIDIUM DIFFICILE COLITIS [None]
